FAERS Safety Report 23981614 (Version 1)
Quarter: 2024Q2

REPORT INFORMATION
  Report Type: Spontaneous
  Country: US (occurrence: None)
  Receive Date: 20240614
  Receipt Date: 20240614
  Transmission Date: 20240716
  Serious: Yes (Hospitalization)
  Sender: FDA-Public Use
  Company Number: None

PATIENT
  Sex: Female

DRUGS (1)
  1. WINREVAIR [Suspect]
     Active Substance: SOTATERCEPT-CSRK
     Indication: Pulmonary arterial hypertension
     Route: 030
     Dates: start: 202405

REACTIONS (8)
  - Nausea [None]
  - Abdominal pain upper [None]
  - Urinary tract infection [None]
  - Malaise [None]
  - Dysphagia [None]
  - Oligodipsia [None]
  - Dizziness [None]
  - Bedridden [None]
